FAERS Safety Report 9993279 (Version 1)
Quarter: 2014Q1

REPORT INFORMATION
  Report Type: Spontaneous
  Country: IN (occurrence: IN)
  Receive Date: 20140310
  Receipt Date: 20140310
  Transmission Date: 20141002
  Serious: Yes (Hospitalization)
  Sender: FDA-Public Use
  Company Number: IN-MYLANLABS-2014S1004312

PATIENT
  Age: 37 Year
  Sex: Female

DRUGS (2)
  1. DOXYCYCLINE [Suspect]
     Indication: LIMB INJURY
     Dosage: ONE DOSE
     Route: 048
  2. DOXYCYCLINE [Suspect]
     Dosage: ONE DOSE
     Route: 048

REACTIONS (3)
  - Drug eruption [Recovered/Resolved]
  - Pain [Unknown]
  - Pyrexia [Unknown]
